FAERS Safety Report 19710489 (Version 1)
Quarter: 2021Q3

REPORT INFORMATION
  Report Type: Spontaneous
  Country: CN (occurrence: CN)
  Receive Date: 20210817
  Receipt Date: 20210817
  Transmission Date: 20211014
  Serious: Yes (Death)
  Sender: FDA-Public Use
  Company Number: CN-CELGENEUS-CHN-20210804154

PATIENT

DRUGS (3)
  1. SERPLULIMAB. [Suspect]
     Active Substance: SERPLULIMAB
     Indication: CERVIX CARCINOMA
     Dosage: 4.5 MILLIGRAM/KILOGRAM
     Route: 041
  2. ABRAXANE [Suspect]
     Active Substance: PACLITAXEL
     Indication: CERVIX CARCINOMA
     Dosage: 260 MILLIGRAM/SQ. METER
     Route: 041
  3. ABRAXANE [Suspect]
     Active Substance: PACLITAXEL
     Indication: OFF LABEL USE

REACTIONS (1)
  - Multiple organ dysfunction syndrome [Fatal]
